FAERS Safety Report 20246430 (Version 1)
Quarter: 2021Q4

REPORT INFORMATION
  Report Type: Report from Study
  Country: MX (occurrence: MX)
  Receive Date: 20211229
  Receipt Date: 20211229
  Transmission Date: 20220303
  Serious: Yes (Disabling, Other)
  Sender: FDA-Public Use
  Company Number: MX-NOVARTISPH-NVSC2020MX263549

PATIENT
  Age: 30 Year
  Sex: Male
  Weight: 72 kg

DRUGS (1)
  1. GILENYA [Suspect]
     Active Substance: FINGOLIMOD HYDROCHLORIDE
     Indication: Multiple sclerosis
     Dosage: 0.5 MG, QD
     Route: 048
     Dates: start: 2017

REACTIONS (5)
  - Hypoacusis [Not Recovered/Not Resolved]
  - Tinnitus [Unknown]
  - Deafness neurosensory [Unknown]
  - Gastrointestinal motility disorder [Unknown]
  - Obstructive defaecation [Unknown]

NARRATIVE: CASE EVENT DATE: 20200201
